FAERS Safety Report 8677311 (Version 2)
Quarter: 2013Q4

REPORT INFORMATION
  Report Type: Spontaneous
  Country: US (occurrence: US)
  Receive Date: 20120723
  Receipt Date: 20131106
  Transmission Date: 20140711
  Serious: Yes (Hospitalization)
  Sender: FDA-Public Use
  Company Number: US-009507513-1207USA002270

PATIENT
  Age: 58 Year
  Sex: Male
  Weight: 108.84 kg

DRUGS (9)
  1. VICTRELIS [Suspect]
     Indication: HEPATITIS C
     Dosage: 800 MG, Q8H
  2. RIBAVIRIN [Concomitant]
     Dosage: 200 MG, UNK
  3. PEGASYS [Concomitant]
     Dosage: 180 MICROGRAM, QM
  4. SYNTHROID [Concomitant]
     Dosage: 25 MICROGRAM, UNK
  5. ASCORBIC ACID [Concomitant]
     Dosage: 250 MG, UNK
  6. OMEGA-3 MARINE TRIGLYCERIDES [Concomitant]
     Dosage: UNK
  7. NIACIN [Concomitant]
     Dosage: 125 MG, UNK
  8. VITAMIN D (UNSPECIFIED) [Concomitant]
     Dosage: 1 DF, QD
  9. METAMUCIL [Concomitant]

REACTIONS (2)
  - Pneumonia [Recovering/Resolving]
  - Lung infection [Recovering/Resolving]
